FAERS Safety Report 10086889 (Version 1)
Quarter: 2014Q2

REPORT INFORMATION
  Report Type: Spontaneous
  Country: GB (occurrence: GB)
  Receive Date: 20140418
  Receipt Date: 20140418
  Transmission Date: 20141212
  Serious: Yes (Disabling)
  Sender: FDA-Public Use
  Company Number: GB-ACTAVIS-2014-07583

PATIENT
  Sex: Female
  Weight: 78 kg

DRUGS (10)
  1. 5-FU                               /00098801/ [Concomitant]
     Dosage: 2400 MG/M2, CYCLICAL
     Route: 042
     Dates: start: 20130903, end: 20130903
  2. FOLIC ACID [Concomitant]
     Indication: COLORECTAL CANCER
     Dosage: 350 MG, CYCLICAL
     Route: 042
     Dates: start: 20140225, end: 20140225
  3. FOLIC ACID [Concomitant]
     Dosage: 350 MG, CYCLICAL
     Route: 042
     Dates: start: 20130903, end: 20130903
  4. IRINOTECAN (UNKNOWN) [Suspect]
     Indication: COLORECTAL CANCER METASTATIC
     Dosage: 4 MG/M2, CYCLICAL
     Route: 065
     Dates: start: 20130903, end: 20130903
  5. IRINOTECAN (UNKNOWN) [Suspect]
     Dosage: 180 MG/M2, CYCLICAL
     Route: 065
     Dates: start: 20140225, end: 20140225
  6. AFLIBERCEPT [Suspect]
     Indication: COLORECTAL CANCER METASTATIC
     Dosage: 4 MG/KG, CYCLICAL
     Route: 065
     Dates: start: 20130903, end: 20130903
  7. AFLIBERCEPT [Suspect]
     Dosage: 4 MG/KG, CYCLICAL
     Route: 065
     Dates: start: 20140225, end: 20140225
  8. 5-FU                               /00098801/ [Concomitant]
     Indication: COLORECTAL CANCER
     Dosage: 400 MG/M2, CYCLICAL
     Route: 042
     Dates: start: 20130903, end: 20130903
  9. 5-FU                               /00098801/ [Concomitant]
     Dosage: 2400 MG/M2, CYCLICAL
     Route: 042
     Dates: start: 20140225, end: 20140225
  10. 5-FU                               /00098801/ [Concomitant]
     Dosage: 400 MG/M2, CYCLICAL
     Route: 042
     Dates: start: 20140225, end: 20140225

REACTIONS (1)
  - Fatigue [Recovering/Resolving]
